FAERS Safety Report 4585213-0 (Version None)
Quarter: 2005Q1

REPORT INFORMATION
  Report Type: 
  Country: None (occurrence: None)
  Receive Date: 20050217
  Receipt Date: 20050124
  Transmission Date: 20050727
  Serious: No
  Sender: FDA-Public Use
  Company Number: US-GLAXOSMITHKLINE-A0541940A

PATIENT
  Age: 29 Year
  Sex: Male

DRUGS (3)
  1. WELLBUTRIN XL [Suspect]
     Indication: DRUG USE FOR UNKNOWN INDICATION
     Route: 048
     Dates: start: 20050110, end: 20050120
  2. PROZAC [Concomitant]
  3. PROPANOL [Concomitant]

REACTIONS (3)
  - INFLUENZA LIKE ILLNESS [None]
  - PYREXIA [None]
  - RASH [None]
